FAERS Safety Report 6394720-X (Version None)
Quarter: 2009Q4

REPORT INFORMATION
  Report Type: 
  Country: None (occurrence: None)
  Receive Date: 20091009
  Receipt Date: 20090930
  Transmission Date: 20100525
  Serious: Yes (Hospitalization, Other)
  Sender: FDA-Public Use
  Company Number: CA-JNJFOC-20091000613

PATIENT
  Sex: Female
  Weight: 53 kg

DRUGS (2)
  1. REMICADE [Suspect]
     Route: 042
     Dates: start: 20080709
  2. REMICADE [Suspect]
     Indication: CROHN'S DISEASE
     Dosage: TOTAL OF 10 INFUSIONS TO DATE
     Route: 042
     Dates: start: 20080709

REACTIONS (2)
  - ABDOMINAL PAIN [None]
  - INTESTINAL MUCOSAL HYPERTROPHY [None]
